FAERS Safety Report 17428395 (Version 2)
Quarter: 2020Q4

REPORT INFORMATION
  Report Type: Report from Study
  Country: US (occurrence: US)
  Receive Date: 20200217
  Receipt Date: 20201006
  Transmission Date: 20210113
  Serious: No
  Sender: FDA-Public Use
  Company Number: NVSC2020US041397

PATIENT
  Age: 83 Year
  Sex: Female

DRUGS (1)
  1. ENTRESTO [Suspect]
     Active Substance: SACUBITRIL\VALSARTAN
     Indication: PRODUCT USED FOR UNKNOWN INDICATION
     Dosage: UNK
     Route: 065
     Dates: start: 20200103

REACTIONS (3)
  - Cough [Unknown]
  - Nasopharyngitis [Recovering/Resolving]
  - Memory impairment [Unknown]

NARRATIVE: CASE EVENT DATE: 20200116
